FAERS Safety Report 7031543-2 (Version None)
Quarter: 2010Q4

REPORT INFORMATION
  Report Type: 
  Country: None (occurrence: None)
  Receive Date: 20101006
  Receipt Date: 20101006
  Transmission Date: 20110411
  Serious: Yes (Hospitalization)
  Sender: FDA-Public Use
  Company Number: None

PATIENT
  Age: 82 Year
  Sex: Male
  Weight: 107.5025 kg

DRUGS (4)
  1. LOVENOX [Suspect]
     Indication: CARDIAC DISORDER
     Dosage: 105 MG Q12H SQ
     Route: 058
     Dates: start: 20100920, end: 20100930
  2. LOVENOX [Suspect]
     Indication: THROMBOSIS PROPHYLAXIS
     Dosage: 40 MG Q DAY SQ
     Route: 058
     Dates: start: 20101001, end: 20101001
  3. ASPIRIN [Concomitant]
  4. PLAVIX [Concomitant]

REACTIONS (2)
  - DYSPNOEA [None]
  - HAEMOGLOBIN DECREASED [None]
